FAERS Safety Report 14253501 (Version 5)
Quarter: 2018Q2

REPORT INFORMATION
  Report Type: Spontaneous
  Country: NO (occurrence: NO)
  Receive Date: 20171206
  Receipt Date: 20180612
  Transmission Date: 20180711
  Serious: Yes (Other)
  Sender: FDA-Public Use
  Company Number: NO-ACCORD-061592

PATIENT
  Sex: Female

DRUGS (27)
  1. MORPHINE [Suspect]
     Active Substance: MORPHINE
     Route: 065
  2. SOBRIL [Suspect]
     Active Substance: OXAZEPAM
     Route: 065
  3. BUSCOPAN [Suspect]
     Active Substance: BUTYLSCOPOLAMINE BROMIDE
  4. AFIPRAM [Suspect]
     Active Substance: METOCLOPRAMIDE HYDROCHLORIDE
  5. METOCLOPRAMIDE. [Suspect]
     Active Substance: METOCLOPRAMIDE
     Route: 065
  6. NEURONTIN [Suspect]
     Active Substance: GABAPENTIN
     Route: 065
  7. KETORAX [Suspect]
     Active Substance: KETOBEMIDONE HYDROCHLORIDE
  8. DULCOLAX NOS [Suspect]
     Active Substance: BISACODYL OR DOCUSATE SODIUM
  9. ORAMORPH [Suspect]
     Active Substance: MORPHINE SULFATE
  10. ZOLPIDEM [Suspect]
     Active Substance: ZOLPIDEM\ZOLPIDEM TARTRATE
  11. OXYNORM [Suspect]
     Active Substance: OXYCODONE HYDROCHLORIDE
  12. NOZINAN [Suspect]
     Active Substance: LEVOMEPROMAZINE
  13. SOMAC [Suspect]
     Active Substance: PANTOPRAZOLE SODIUM
  14. MIDAZOLAM [Suspect]
     Active Substance: MIDAZOLAM HYDROCHLORIDE
     Route: 065
  15. PREDNISOLONE. [Suspect]
     Active Substance: PREDNISOLONE
  16. VALIUM [Suspect]
     Active Substance: DIAZEPAM
     Route: 065
  17. FURIX [Suspect]
     Active Substance: FUROSEMIDE
  18. FLUCONAZOL [Suspect]
     Active Substance: FLUCONAZOLE
     Route: 065
  19. ZOPICLONE [Suspect]
     Active Substance: ZOPICLONE
     Route: 065
  20. PINEX FORTE [Suspect]
     Active Substance: ACETAMINOPHEN\CODEINE PHOSPHATE
  21. BACLOFEN. [Suspect]
     Active Substance: BACLOFEN
     Route: 065
  22. ONDANSETRON [Suspect]
     Active Substance: ONDANSETRON
  23. TARGINIQ ER [Suspect]
     Active Substance: NALOXONE HYDROCHLORIDE\OXYCODONE HYDROCHLORIDE
  24. ZOFRAN [Suspect]
     Active Substance: ONDANSETRON HYDROCHLORIDE
     Route: 065
  25. STESOLID [Suspect]
     Active Substance: DIAZEPAM
  26. TRAMADOL. [Suspect]
     Active Substance: TRAMADOL
  27. SETOFILM [Suspect]
     Active Substance: ONDANSETRON
     Dosage: FORMULATION: ORODISPERSIBLE FILM
     Route: 065

REACTIONS (3)
  - Drug dependence [Unknown]
  - Drug diversion [Unknown]
  - Drug abuse [Unknown]
